FAERS Safety Report 24234652 (Version 1)
Quarter: 2024Q3

REPORT INFORMATION
  Report Type: Spontaneous
  Country: FR (occurrence: None)
  Receive Date: 20240821
  Receipt Date: 20240821
  Transmission Date: 20241016
  Serious: Yes (Other)
  Sender: ASTRAZENECA
  Company Number: 2024A184255

PATIENT
  Age: 68 Year
  Sex: Male

DRUGS (2)
  1. EVUSHELD [Suspect]
     Active Substance: CILGAVIMAB\TIXAGEVIMAB
     Indication: COVID-19
     Dosage: 600.0MG UNKNOWN
     Dates: start: 20220303, end: 20220303
  2. VALPROATE SODIUM [Concomitant]
     Active Substance: VALPROATE SODIUM
     Indication: Epilepsy

REACTIONS (1)
  - Sinus tachycardia [Recovering/Resolving]

NARRATIVE: CASE EVENT DATE: 20220303
